FAERS Safety Report 15363273 (Version 2)
Quarter: 2018Q3

REPORT INFORMATION
  Report Type: Not Available
  Country: US (occurrence: US)
  Receive Date: 20180907
  Receipt Date: 20180924
  Transmission Date: 20181010
  Serious: Yes (Hospitalization)
  Sender: FDA-Public Use
  Company Number: US-NEUROCRINE BIOSCIENCES INC.-2018NBI02699

PATIENT
  Age: 78 Year
  Sex: Female

DRUGS (26)
  1. INGREZZA [Suspect]
     Active Substance: VALBENAZINE
     Route: 048
     Dates: start: 20170923, end: 20180801
  2. GABAPENTIN. [Concomitant]
     Active Substance: GABAPENTIN
  3. PROAIR HFA [Concomitant]
     Active Substance: ALBUTEROL SULFATE
  4. MUCINEX [Concomitant]
     Active Substance: GUAIFENESIN
  5. LOSARTAN POTASSIUM. [Concomitant]
     Active Substance: LOSARTAN POTASSIUM
  6. CYMBALTA [Concomitant]
     Active Substance: DULOXETINE HYDROCHLORIDE
  7. FISH OIL [Concomitant]
     Active Substance: FISH OIL
  8. INGREZZA [Suspect]
     Active Substance: VALBENAZINE
     Dates: end: 201808
  9. MONTELUKAST SODIUM. [Concomitant]
     Active Substance: MONTELUKAST SODIUM
  10. PERCOCET [Concomitant]
     Active Substance: ACETAMINOPHEN\OXYCODONE HYDROCHLORIDE
  11. INGREZZA [Suspect]
     Active Substance: VALBENAZINE
     Indication: TARDIVE DYSKINESIA
     Route: 048
     Dates: start: 20170915, end: 20170922
  12. ACIPHEX [Concomitant]
     Active Substance: RABEPRAZOLE SODIUM
  13. CALCIUM [Concomitant]
     Active Substance: CALCIUM
  14. ADVAIR HFA [Concomitant]
     Active Substance: FLUTICASONE PROPIONATE\SALMETEROL XINAFOATE
  15. CELEBREX [Concomitant]
     Active Substance: CELECOXIB
  16. PLAVIX [Concomitant]
     Active Substance: CLOPIDOGREL BISULFATE
  17. LEVOTHYROXINE SODIUM. [Concomitant]
     Active Substance: LEVOTHYROXINE SODIUM
  18. OMEPRAZOLE. [Concomitant]
     Active Substance: OMEPRAZOLE
  19. PREDNISONE. [Concomitant]
     Active Substance: PREDNISONE
  20. ZETIA [Concomitant]
     Active Substance: EZETIMIBE
  21. ROPINIROLE. [Concomitant]
     Active Substance: ROPINIROLE
  22. BYSTOLIC [Concomitant]
     Active Substance: NEBIVOLOL HYDROCHLORIDE
  23. INGREZZA [Suspect]
     Active Substance: VALBENAZINE
     Dates: start: 201808
  24. POTASSIUM CHLORIDE ER [Concomitant]
     Active Substance: POTASSIUM CHLORIDE
  25. PRAVASTATIN. [Concomitant]
     Active Substance: PRAVASTATIN
  26. PROLIA [Concomitant]
     Active Substance: DENOSUMAB

REACTIONS (2)
  - Staphylococcal infection [Not Recovered/Not Resolved]
  - Blood sodium decreased [Recovered/Resolved]

NARRATIVE: CASE EVENT DATE: 201808
